FAERS Safety Report 11122097 (Version 2)
Quarter: 2015Q3

REPORT INFORMATION
  Report Type: Report from Study
  Country: US (occurrence: US)
  Receive Date: 20150519
  Receipt Date: 20150811
  Transmission Date: 20151125
  Serious: Yes (Hospitalization)
  Sender: FDA-Public Use
  Company Number: PHEH2015US009329

PATIENT
  Sex: Male
  Weight: 64 kg

DRUGS (1)
  1. EXJADE [Suspect]
     Active Substance: DEFERASIROX
     Indication: MYELODYSPLASTIC SYNDROME
     Dosage: 1500 MG, QD
     Route: 048

REACTIONS (5)
  - Influenza [Unknown]
  - Seizure [Unknown]
  - Haemoglobin decreased [Unknown]
  - Pneumonia [Unknown]
  - Asthenia [Unknown]
